FAERS Safety Report 13552855 (Version 2)
Quarter: 2017Q4

REPORT INFORMATION
  Report Type: Spontaneous
  Country: US (occurrence: US)
  Receive Date: 20170517
  Receipt Date: 20171102
  Transmission Date: 20180320
  Serious: Yes (Hospitalization, Other)
  Sender: FDA-Public Use
  Company Number: US-009507513-1705USA005978

PATIENT
  Age: 19 Year
  Sex: Female

DRUGS (8)
  1. LEVOTHYROXINE SODIUM. [Concomitant]
     Active Substance: LEVOTHYROXINE SODIUM
     Indication: BIPOLAR II DISORDER
     Dosage: 75 MICROGRAM, QD
     Dates: start: 2015
  2. LITHOBID [Concomitant]
     Active Substance: LITHIUM CARBONATE
     Indication: BIPOLAR II DISORDER
     Dosage: 600 MG, QD
     Dates: start: 2015, end: 20170417
  3. REMERON [Suspect]
     Active Substance: MIRTAZAPINE
     Indication: SLEEP DISORDER
     Dosage: UNKNOWN
     Dates: start: 20170420, end: 2017
  4. EFFEXOR XR [Suspect]
     Active Substance: VENLAFAXINE HYDROCHLORIDE
     Indication: DEPRESSION SUICIDAL
     Dosage: UNKNOWN
     Dates: start: 20170428
  5. WELLBUTRIN [Concomitant]
     Active Substance: BUPROPION HYDROCHLORIDE
     Indication: DEPRESSION SUICIDAL
     Dosage: 150 MG, QD
     Dates: start: 201701, end: 201703
  6. WELLBUTRIN [Concomitant]
     Active Substance: BUPROPION HYDROCHLORIDE
     Dosage: 300 MG, QD
     Dates: start: 201703, end: 20170417
  7. VENLAFAXINE HYDROCHLORIDE. [Concomitant]
     Active Substance: VENLAFAXINE HYDROCHLORIDE
     Dosage: INCREASING DOSING
     Dates: start: 20170420, end: 20170428
  8. SEROQUEL [Concomitant]
     Active Substance: QUETIAPINE FUMARATE
     Indication: SLEEP DISORDER
     Dosage: UNK

REACTIONS (7)
  - Feeling abnormal [Recovered/Resolved]
  - Social anxiety disorder [Recovered/Resolved]
  - Suicidal ideation [Recovered/Resolved]
  - Insomnia [Recovered/Resolved]
  - Headache [Recovered/Resolved]
  - Dizziness postural [Unknown]
  - Dizziness [Unknown]

NARRATIVE: CASE EVENT DATE: 20170430
